FAERS Safety Report 25801549 (Version 1)
Quarter: 2025Q3

REPORT INFORMATION
  Report Type: Spontaneous
  Country: US (occurrence: None)
  Receive Date: 20250912
  Receipt Date: 20250912
  Transmission Date: 20251021
  Serious: Yes (Life-Threatening, Hospitalization, Other)
  Sender: FDA-CTU
  Company Number: None

PATIENT
  Age: 29 Year
  Sex: Female
  Weight: 72 kg

DRUGS (1)
  1. PRISTIQ EXTENDED-RELEASE [Suspect]
     Active Substance: DESVENLAFAXINE SUCCINATE
     Indication: Depression
     Route: 048
     Dates: start: 20200901, end: 20221101

REACTIONS (17)
  - Withdrawal syndrome [None]
  - Anxiety [None]
  - Paranoia [None]
  - Hallucination, auditory [None]
  - Hallucination, visual [None]
  - Language disorder [None]
  - Memory impairment [None]
  - Sleep disorder [None]
  - Blunted affect [None]
  - Arthralgia [None]
  - Photophobia [None]
  - Body temperature abnormal [None]
  - Psychotic disorder [None]
  - Disorientation [None]
  - Emotional disorder [None]
  - Sexual dysfunction [None]
  - Impaired quality of life [None]

NARRATIVE: CASE EVENT DATE: 20230201
